FAERS Safety Report 9783996 (Version 1)
Quarter: 2013Q4

REPORT INFORMATION
  Report Type: Spontaneous
  Country: BR (occurrence: BR)
  Receive Date: 20131226
  Receipt Date: 20131226
  Transmission Date: 20140711
  Serious: Yes (Death, Other)
  Sender: FDA-Public Use
  Company Number: BR-PFIZER INC-2013364828

PATIENT
  Age: 98 Year
  Sex: Female
  Weight: 50 kg

DRUGS (2)
  1. XALATAN [Suspect]
     Indication: GLAUCOMA
     Dosage: 3 UG (ONE DROP IN EACH EYE), 1X/DAY
     Route: 047
     Dates: start: 1993
  2. ARADOIS [Concomitant]
     Indication: BLOOD PRESSURE
     Dosage: ONE CAPSULE OR TABLET DAILY
     Dates: start: 1983

REACTIONS (1)
  - Multi-organ failure [Fatal]
